FAERS Safety Report 5127283-7 (Version None)
Quarter: 2006Q4

REPORT INFORMATION
  Report Type: 
  Country: None (occurrence: None)
  Receive Date: 20061013
  Receipt Date: 20061002
  Transmission Date: 20070319
  Serious: Yes (Life-Threatening, Hospitalization)
  Sender: FDA-Public Use
  Company Number: GB-MERCK-0610GBR00028

PATIENT
  Age: 22 Year
  Sex: Male
  Weight: 93 kg

DRUGS (7)
  1. FOSAMAX [Suspect]
     Route: 048
  2. OMALIZUMAB [Suspect]
     Route: 058
  3. MONTELUKAST SODIUM [Concomitant]
     Route: 065
  4. OMEPRAZOLE [Concomitant]
     Route: 065
  5. PREDNISOLONE [Concomitant]
     Route: 065
  6. FLUTICASONE PROPIONATE AND SALMETEROL XINAFOATE [Concomitant]
     Route: 065
  7. THEOPHYLLINE [Concomitant]
     Route: 065

REACTIONS (1)
  - ASTHMA [None]
